FAERS Safety Report 13671393 (Version 1)
Quarter: 2017Q2

REPORT INFORMATION
  Report Type: Spontaneous
  Country: US (occurrence: US)
  Receive Date: 20170620
  Receipt Date: 20170620
  Transmission Date: 20170830
  Serious: Yes (Other)
  Sender: FDA-Public Use
  Company Number: US-ROCHE-1074893

PATIENT
  Age: 57 Year
  Sex: Female

DRUGS (2)
  1. XELODA [Suspect]
     Active Substance: CAPECITABINE
     Indication: BREAST CANCER
     Dosage: FOR 14 DAYS THEN 7 DAYS OFF
     Route: 048
     Dates: start: 20120410, end: 20120510
  2. XELODA [Suspect]
     Active Substance: CAPECITABINE
     Dosage: FOR 7 DAYS THEN 7 DAYS OFF
     Route: 065
     Dates: start: 20120510

REACTIONS (1)
  - Paraesthesia [Unknown]

NARRATIVE: CASE EVENT DATE: 20120508
